FAERS Safety Report 10261111 (Version 2)
Quarter: 2014Q2

REPORT INFORMATION
  Report Type: Report from Study
  Country: US (occurrence: US)
  Receive Date: 20140626
  Receipt Date: 20140626
  Transmission Date: 20141212
  Serious: Yes (Death, Hospitalization)
  Sender: FDA-Public Use
  Company Number: US-JNJFOC-20140606411

PATIENT
  Sex: Male

DRUGS (2)
  1. ZYTIGA [Suspect]
     Indication: PROSTATE CANCER STAGE IV
     Dosage: 250MG FOUR TABLETS
     Route: 048
     Dates: start: 20140530, end: 20140601
  2. ZYTIGA [Suspect]
     Indication: PROSTATE CANCER STAGE IV
     Route: 048
     Dates: start: 20140602, end: 20140602

REACTIONS (5)
  - Arteriosclerosis coronary artery [Fatal]
  - Haematemesis [Unknown]
  - Pulmonary congestion [Unknown]
  - Asphyxia [Unknown]
  - Incorrect dose administered [Unknown]
